FAERS Safety Report 19417846 (Version 1)
Quarter: 2021Q2

REPORT INFORMATION
  Report Type: Spontaneous
  Country: ES (occurrence: ES)
  Receive Date: 20210615
  Receipt Date: 20210615
  Transmission Date: 20210717
  Serious: Yes (Hospitalization, Other)
  Sender: FDA-Public Use
  Company Number: ES-ALVOGEN-2021-ALVOGEN-117085

PATIENT
  Age: 53 Year
  Sex: Male

DRUGS (1)
  1. DISULFIRAM. [Suspect]
     Active Substance: DISULFIRAM
     Indication: ALCOHOLISM

REACTIONS (7)
  - Hepatic encephalopathy [Recovering/Resolving]
  - Drug-induced liver injury [Recovering/Resolving]
  - Hepatic cirrhosis [Unknown]
  - Portal hypertension [Unknown]
  - Condition aggravated [Recovering/Resolving]
  - Hepatic necrosis [Unknown]
  - Self-medication [Unknown]
